FAERS Safety Report 7825754-3 (Version None)
Quarter: 2011Q4

REPORT INFORMATION
  Report Type: 
  Country: None (occurrence: None)
  Receive Date: 20111019
  Receipt Date: 20111014
  Transmission Date: 20120403
  Serious: Yes (Death)
  Sender: FDA-Public Use
  Company Number: PHHY2011DE78558

PATIENT
  Sex: Female
  Weight: 50 kg

DRUGS (2)
  1. EXJADE [Suspect]
     Dosage: UNK UKN, UNK
     Route: 065
  2. MOLSIDOMINE [Concomitant]
     Indication: CARDIAC FAILURE
     Dosage: 8 MG, PER DAY
     Route: 048
     Dates: start: 20110429

REACTIONS (1)
  - DEATH [None]
